FAERS Safety Report 8941449 (Version 2)
Quarter: 2012Q4

REPORT INFORMATION
  Report Type: 
  Country: US (occurrence: US)
  Receive Date: 20121121
  Receipt Date: 20121212
  Transmission Date: 20130627
  Serious: Yes (Death, Hospitalization)
  Sender: FDA-Public Use
  Company Number: US-ASTELLAS-1115074

PATIENT
  Sex: Female

DRUGS (3)
  1. TARCEVA [Suspect]
     Indication: LUNG NEOPLASM MALIGNANT
     Route: 048
     Dates: start: 20080905, end: 20081005
  2. TARCEVA [Suspect]
     Indication: BONE NEOPLASM MALIGNANT
  3. TARCEVA [Suspect]
     Indication: NON-SMALL CELL LUNG CANCER METASTATIC

REACTIONS (2)
  - Lung neoplasm malignant [Fatal]
  - Metastases to central nervous system [Unknown]
